FAERS Safety Report 8983041 (Version 4)
Quarter: 2013Q2

REPORT INFORMATION
  Report Type: Spontaneous
  Country: US (occurrence: US)
  Receive Date: 20121221
  Receipt Date: 20130610
  Transmission Date: 20140414
  Serious: Yes (Death)
  Sender: FDA-Public Use
  Company Number: US-ASTRAZENECA-2010SE40517

PATIENT
  Age: 83 Year
  Sex: Female

DRUGS (2)
  1. SYMBICORT PMDI [Suspect]
     Indication: CHRONIC OBSTRUCTIVE PULMONARY DISEASE
     Dosage: 160/4.5 MCG , UNKNOWN
     Route: 055
  2. AVALOX [Suspect]
     Route: 065

REACTIONS (6)
  - Death [Fatal]
  - Pneumonia [Unknown]
  - Nasopharyngitis [Unknown]
  - Confusional state [Unknown]
  - Malaise [Unknown]
  - Memory impairment [Unknown]
